FAERS Safety Report 6900813-8 (Version None)
Quarter: 2010Q3

REPORT INFORMATION
  Report Type: 
  Country: None (occurrence: None)
  Receive Date: 20100803
  Receipt Date: 20100722
  Transmission Date: 20110219
  Serious: Yes (Hospitalization)
  Sender: FDA-Public Use
  Company Number: FR-PFIZER INC-2009199852

PATIENT
  Age: 74 Year
  Sex: Male

DRUGS (4)
  1. SUTENT [Suspect]
     Indication: RENAL CANCER METASTATIC
     Dosage: 50MG CYCLIC, 4 WEEKS IN A ROW, 2 WEEKS OFF.
     Dates: start: 20070720
  2. ZANEDIP [Concomitant]
     Indication: HYPERTENSION
  3. ZOFENIL [Concomitant]
     Indication: HYPERTENSION
  4. PREVISCAN [Concomitant]
     Indication: VENOUS THROMBOSIS
     Dosage: EVERY DAY

REACTIONS (1)
  - OESOPHAGITIS ULCERATIVE [None]
